FAERS Safety Report 10925586 (Version 2)
Quarter: 2015Q2

REPORT INFORMATION
  Report Type: Spontaneous
  Country: BR (occurrence: BR)
  Receive Date: 20150318
  Receipt Date: 20150413
  Transmission Date: 20150821
  Serious: Yes (Other)
  Sender: FDA-Public Use
  Company Number: BR-PFIZER INC-2015090284

PATIENT
  Age: 30 Year
  Sex: Female
  Weight: 58 kg

DRUGS (3)
  1. GEODON [Suspect]
     Active Substance: ZIPRASIDONE HYDROCHLORIDE\ZIPRASIDONE MESYLATE
     Indication: MANIA
     Dosage: 80 MG, DAILY
     Route: 048
     Dates: start: 2014
  2. RIVOTRIL [Suspect]
     Active Substance: CLONAZEPAM
     Indication: MANIA
     Dosage: UNK
     Route: 048
     Dates: start: 2014
  3. CARBOLITIUM CS [Concomitant]
     Dosage: 450 MG, 2X/DAY
     Dates: start: 2014

REACTIONS (3)
  - Psychiatric symptom [Unknown]
  - Hallucination, visual [Unknown]
  - Somnolence [Unknown]

NARRATIVE: CASE EVENT DATE: 201502
